FAERS Safety Report 7110072-1 (Version None)
Quarter: 2010Q4

REPORT INFORMATION
  Report Type: 
  Country: None (occurrence: None)
  Receive Date: 20101118
  Receipt Date: 20101112
  Transmission Date: 20110411
  Serious: Yes (Hospitalization)
  Sender: FDA-Public Use
  Company Number: CN-BAYER-201039766GPV

PATIENT
  Age: 54 Year
  Sex: Male
  Weight: 63 kg

DRUGS (8)
  1. SORAFENIB [Suspect]
     Indication: HEPATIC NEOPLASM MALIGNANT
     Dosage: AS USED: 800 MG  UNIT DOSE: 200 MG
     Route: 048
     Dates: start: 20100816, end: 20100817
  2. SORAFENIB [Suspect]
     Dosage: UNIT DOSE: 200 MG
     Route: 048
     Dates: start: 20100823, end: 20100905
  3. SORAFENIB [Suspect]
     Route: 048
     Dates: start: 20100916, end: 20101017
  4. SORAFENIB [Suspect]
     Route: 048
     Dates: start: 20101105, end: 20101112
  5. PLACEBO [Suspect]
     Indication: HEPATIC NEOPLASM MALIGNANT
     Route: 048
     Dates: start: 20100816, end: 20100817
  6. PLACEBO [Suspect]
     Route: 048
     Dates: start: 20100823, end: 20100905
  7. PLACEBO [Suspect]
     Route: 048
     Dates: start: 20100916, end: 20101017
  8. PLACEBO [Suspect]
     Route: 048
     Dates: start: 20101105, end: 20101112

REACTIONS (1)
  - ABDOMINAL WALL ABSCESS [None]
